FAERS Safety Report 6047487-9 (Version None)
Quarter: 2009Q1

REPORT INFORMATION
  Report Type: 
  Country: None (occurrence: None)
  Receive Date: 20090122
  Receipt Date: 20090113
  Transmission Date: 20090719
  Serious: Yes (Hospitalization, Disabling, Other)
  Sender: FDA-Public Use
  Company Number: BR-ROXANE LABORATORIES, INC.-2009-RO-00059RO

PATIENT
  Age: 44 Year
  Sex: Female

DRUGS (8)
  1. LITHIUM CARBONATE [Suspect]
     Indication: BIPOLAR DISORDER
     Dosage: 1200MG
  2. LITHIUM CARBONATE [Suspect]
     Indication: BRIEF PSYCHOTIC DISORDER, WITH POSTPARTUM ONSET
     Dosage: 6G
  3. HALOPERIDOL [Suspect]
     Indication: AGITATION
     Dosage: 15MG
  4. HALOPERIDOL [Suspect]
  5. CHLORPROMAZINE [Suspect]
     Indication: AGITATION
     Dosage: 75MG
  6. CHLORPROMAZINE [Suspect]
  7. SERTRALINE [Concomitant]
     Indication: BIPOLAR DISORDER
     Dosage: 100MG
  8. VALPROATE SODIUM [Concomitant]
     Indication: BIPOLAR DISORDER
     Dosage: 750MG

REACTIONS (6)
  - DRUG INEFFECTIVE [None]
  - ENCEPHALOPATHY [None]
  - NEUROTOXICITY [None]
  - RESPIRATORY TRACT INFECTION [None]
  - SUICIDE ATTEMPT [None]
  - THERAPEUTIC AGENT TOXICITY [None]
